FAERS Safety Report 9962909 (Version 2)
Quarter: 2014Q1

REPORT INFORMATION
  Report Type: Report from Study
  Country: US (occurrence: US)
  Receive Date: 20140305
  Receipt Date: 20140305
  Transmission Date: 20141002
  Serious: No
  Sender: FDA-Public Use
  Company Number: US-ABBVIE-13P-163-1079070-00

PATIENT
  Age: 63 Year
  Sex: Female

DRUGS (6)
  1. HUMIRA [Suspect]
     Indication: CROHN^S DISEASE
     Dosage: LOADING DOSE
     Dates: start: 20130322, end: 20130322
  2. HUMIRA [Suspect]
  3. APRISO [Concomitant]
     Indication: CROHN^S DISEASE
  4. LEVOTHYROXINE [Concomitant]
     Indication: HYPOTHYROIDISM
  5. VIVELLE-DOT [Concomitant]
     Indication: HORMONE REPLACEMENT THERAPY
  6. PROGESTERONE [Concomitant]
     Indication: HORMONE REPLACEMENT THERAPY
     Dosage: AT BEDTIME

REACTIONS (3)
  - Injection site erythema [Recovered/Resolved]
  - Injection site pruritus [Recovered/Resolved]
  - Injection site haemorrhage [Recovered/Resolved]
